FAERS Safety Report 4315072-2 (Version None)
Quarter: 2004Q1

REPORT INFORMATION
  Report Type: 
  Country: None (occurrence: None)
  Receive Date: 20040310
  Receipt Date: 20040122
  Transmission Date: 20041129
  Serious: Yes (Life-Threatening)
  Sender: FDA-Public Use
  Company Number: JP-ROCHE-356656

PATIENT
  Age: 53 Year
  Sex: Male

DRUGS (3)
  1. NICARDIPINE HCL [Suspect]
     Indication: AORTIC DISSECTION
     Dosage: CONTINUOUS DRIP.
     Route: 065
     Dates: start: 20030212, end: 20030318
  2. GLYCERYL TRINITRATE [Suspect]
     Indication: AORTIC DISSECTION
     Dosage: ENTERED AS MILLISROL. CONTINUOUS DRIP.
     Route: 065
     Dates: start: 20030212, end: 20030318
  3. METOPROLOL [Concomitant]
     Indication: AORTIC DISSECTION
     Dates: start: 20030213

REACTIONS (3)
  - AORTIC THROMBOSIS [None]
  - DYSPNOEA [None]
  - HYPOXIA [None]
